FAERS Safety Report 4664816-9 (Version None)
Quarter: 2005Q2

REPORT INFORMATION
  Report Type: 
  Country: None (occurrence: None)
  Receive Date: 20050517
  Receipt Date: 20050517
  Transmission Date: 20051028
  Serious: No
  Sender: FDA-Public Use
  Company Number: None

PATIENT
  Age: 53 Year
  Sex: Male

DRUGS (1)
  1. AMPHOTERICIN B [Suspect]
     Indication: MENINGITIS CRYPTOCOCCAL
     Dosage: 350 MG IV DAILY
     Route: 042
     Dates: start: 20051218, end: 20051221

REACTIONS (1)
  - BLOOD CREATININE INCREASED [None]
